FAERS Safety Report 5088954-4 (Version None)
Quarter: 2006Q3

REPORT INFORMATION
  Report Type: 
  Country: None (occurrence: None)
  Receive Date: 20060822
  Receipt Date: 20060803
  Transmission Date: 20061208
  Serious: Yes (Hospitalization)
  Sender: FDA-Public Use
  Company Number: GB200606003692

PATIENT
  Age: 41 Year
  Sex: Female
  Weight: 54 kg

DRUGS (6)
  1. GEMCITABINE [Suspect]
     Indication: BREAST CANCER
     Dosage: 3000 MG, INTRAVENOUS
     Route: 042
     Dates: start: 20060522
  2. PACLITAXEL [Suspect]
     Indication: BREAST CANCER
     Dosage: 270 MG, INTRAVENOUS
     Route: 042
     Dates: start: 20060522
  3. ONDANSETRON [Concomitant]
  4. DEXAMETHASONE TAB [Concomitant]
  5. RANITIDINE [Concomitant]
  6. CHLORPHENAMINE (CHLORPHENAMINE) [Concomitant]

REACTIONS (6)
  - ALANINE AMINOTRANSFERASE INCREASED [None]
  - C-REACTIVE PROTEIN INCREASED [None]
  - PHARYNGOLARYNGEAL PAIN [None]
  - PYREXIA [None]
  - TONSILLITIS [None]
  - WHITE BLOOD CELL COUNT DECREASED [None]
